FAERS Safety Report 6270504-8 (Version None)
Quarter: 2009Q3

REPORT INFORMATION
  Report Type: 
  Country: None (occurrence: None)
  Receive Date: 20090716
  Receipt Date: 20090709
  Transmission Date: 20100115
  Serious: Yes (Other)
  Sender: FDA-Public Use
  Company Number: ES-AVENTIS-200915126GDDC

PATIENT
  Age: 49 Year
  Sex: Female

DRUGS (6)
  1. GLIBENCLAMIDE [Suspect]
     Route: 048
  2. METFORMIN HCL [Suspect]
     Route: 048
  3. TRANDOLAPRIL [Suspect]
     Indication: HYPERTENSION
     Dates: end: 20060420
  4. VALSARTAN [Concomitant]
     Dates: start: 20060421
  5. OMEPRAZOLE [Concomitant]
  6. KETOCONAZOLE [Concomitant]

REACTIONS (5)
  - DRUG INEFFECTIVE [None]
  - DRUG INTERACTION [None]
  - HYPERTENSION [None]
  - HYPOGLYCAEMIA [None]
  - POISONING [None]
